FAERS Safety Report 13237761 (Version 1)
Quarter: 2017Q1

REPORT INFORMATION
  Report Type: Spontaneous
  Country: US (occurrence: US)
  Receive Date: 20170215
  Receipt Date: 20170215
  Transmission Date: 20170428
  Serious: Yes (Hospitalization)
  Sender: FDA-Public Use
  Company Number: None

PATIENT
  Age: 66 Year
  Sex: Male
  Weight: 79.2 kg

DRUGS (1)
  1. TIZANIDINE. [Suspect]
     Active Substance: TIZANIDINE
     Indication: PAIN
     Route: 048
     Dates: start: 20160116, end: 20170108

REACTIONS (9)
  - Dyspnoea [None]
  - Cough [None]
  - Wheezing [None]
  - Hepatic enzyme increased [None]
  - Cholecystitis [None]
  - Treatment noncompliance [None]
  - Gamma-glutamyltransferase increased [None]
  - Abdominal pain [None]
  - Systemic inflammatory response syndrome [None]

NARRATIVE: CASE EVENT DATE: 20170108
